FAERS Safety Report 6610098-8 (Version None)
Quarter: 2010Q1

REPORT INFORMATION
  Report Type: 
  Country: None (occurrence: None)
  Receive Date: 20100219
  Receipt Date: 20100205
  Transmission Date: 20100710
  Serious: Yes (Other)
  Sender: FDA-Public Use
  Company Number: 2010-00166

PATIENT
  Age: 76 Year
  Sex: Male
  Weight: 80 kg

DRUGS (7)
  1. SIMVASTATIN [Suspect]
     Indication: DRUG USE FOR UNKNOWN INDICATION
  2. LIPITOR [Suspect]
     Indication: ACUTE CORONARY SYNDROME
     Dosage: 80 MG (1 IN 1 D), ORAL
     Route: 048
     Dates: start: 20091006
  3. RAMIPRIL [Concomitant]
  4. ASPIRIN [Concomitant]
  5. ALFUZOSIN HCL [Concomitant]
  6. ALLOPURINOL [Concomitant]
  7. BISOPROLOL [Concomitant]

REACTIONS (2)
  - FINGER DEFORMITY [None]
  - TENDON RUPTURE [None]
